FAERS Safety Report 24053303 (Version 1)
Quarter: 2024Q3

REPORT INFORMATION
  Report Type: Spontaneous
  Country: US (occurrence: US)
  Receive Date: 20240705
  Receipt Date: 20240705
  Transmission Date: 20241017
  Serious: No
  Sender: JOHNSON AND JOHNSON
  Company Number: US-JNJFOC-20240707849

PATIENT

DRUGS (2)
  1. ESKETAMINE [Suspect]
     Active Substance: ESKETAMINE
     Indication: Product used for unknown indication
  2. OZEMPIC [Interacting]
     Active Substance: SEMAGLUTIDE

REACTIONS (2)
  - Drug interaction [Unknown]
  - Nausea [Not Recovered/Not Resolved]
